FAERS Safety Report 14487089 (Version 1)
Quarter: 2018Q1

REPORT INFORMATION
  Report Type: Spontaneous
  Country: US (occurrence: US)
  Receive Date: 20180204
  Receipt Date: 20180204
  Transmission Date: 20180509
  Serious: Yes (Other)
  Sender: FDA-Public Use
  Company Number: None

PATIENT
  Age: 74 Year
  Sex: Female
  Weight: 57.6 kg

DRUGS (10)
  1. DHEA [Concomitant]
     Active Substance: PRASTERONE
  2. CALCIUM [Concomitant]
     Active Substance: CALCIUM
  3. VITAMIN C [Concomitant]
     Active Substance: ASCORBIC ACID
  4. MAGNESIUM [Concomitant]
     Active Substance: MAGNESIUM
  5. BENICAR [Concomitant]
     Active Substance: OLMESARTAN MEDOXOMIL
  6. OSELTAMIVIR 75MG CAPSULES [Suspect]
     Active Substance: OSELTAMIVIR
     Indication: INFLUENZA
     Dosage: ?          QUANTITY:2 CAPSULE(S);?
     Route: 048
  7. ESTRATEST HS [Concomitant]
     Active Substance: ESTROGENS, ESTERIFIED\METHYLTESTOSTERONE
  8. ALMODOPINE [Concomitant]
  9. TRIAN/HCTZ [Concomitant]
  10. PANTOPRAZOLE SOLIUM [Concomitant]

REACTIONS (2)
  - Amnesia [None]
  - Vomiting [None]
